FAERS Safety Report 9403391 (Version 1)
Quarter: 2013Q3

REPORT INFORMATION
  Report Type: Spontaneous
  Country: US (occurrence: US)
  Receive Date: 20130716
  Receipt Date: 20130716
  Transmission Date: 20140515
  Serious: Yes (Other)
  Sender: FDA-Public Use
  Company Number: US-MYLANLABS-2013S1015131

PATIENT
  Age: 58 Year
  Sex: Male

DRUGS (1)
  1. ROPINIROLE [Suspect]
     Indication: PARKINSON^S DISEASE
     Dosage: 6MG/DAY
     Route: 065

REACTIONS (4)
  - Gambling [Unknown]
  - Alcohol abuse [Unknown]
  - Depression [Unknown]
  - Drug abuse [Recovering/Resolving]
